FAERS Safety Report 9708917 (Version 1)
Quarter: 2013Q4

REPORT INFORMATION
  Report Type: Report from Study
  Country: MX (occurrence: MX)
  Receive Date: 20131125
  Receipt Date: 20131125
  Transmission Date: 20140711
  Serious: Yes (Hospitalization, Other)
  Sender: FDA-Public Use
  Company Number: PHHY2013MX135764

PATIENT
  Age: 26 Year
  Sex: Female

DRUGS (3)
  1. TEGRETOL 400 LC [Suspect]
     Indication: EPILEPSY
     Dosage: 2 DF (400MG), DAILY
     Route: 048
     Dates: end: 201309
  2. TEGRETOL 400 LC [Suspect]
     Dosage: 1 DF (400MG), DAILY
     Route: 048
     Dates: start: 201309, end: 201311
  3. LEVETIRACETAM [Concomitant]
     Dosage: 1.5 UKN, DAILY

REACTIONS (5)
  - Burns third degree [Unknown]
  - Convulsion [Unknown]
  - Aggression [Not Recovered/Not Resolved]
  - Depression [Not Recovered/Not Resolved]
  - Headache [Not Recovered/Not Resolved]
